FAERS Safety Report 7954624-5 (Version None)
Quarter: 2011Q4

REPORT INFORMATION
  Report Type: 
  Country: None (occurrence: None)
  Receive Date: 20111202
  Receipt Date: 20111129
  Transmission Date: 20120403
  Serious: Yes (Hospitalization)
  Sender: FDA-Public Use
  Company Number: PHHO2011DE15719

PATIENT
  Age: 71 Year
  Sex: Female
  Weight: 81 kg

DRUGS (2)
  1. AFINITOR [Suspect]
     Indication: METASTATIC RENAL CELL CARCINOMA
     Dosage: 10 MG, QD
     Route: 048
     Dates: start: 20110719, end: 20110801
  2. AFINITOR [Suspect]
     Dosage: 5 MG, BID
     Route: 048
     Dates: start: 20110802, end: 20111028

REACTIONS (2)
  - PNEUMONITIS [None]
  - MUSCULAR WEAKNESS [None]
